FAERS Safety Report 10066933 (Version 1)
Quarter: 2014Q2

REPORT INFORMATION
  Report Type: Report from Study
  Country: PL (occurrence: PL)
  Receive Date: 20140409
  Receipt Date: 20140409
  Transmission Date: 20141212
  Serious: Yes (Hospitalization)
  Sender: FDA-Public Use
  Company Number: PHHY2014PL039621

PATIENT
  Age: 61 Year
  Sex: Female
  Weight: 101 kg

DRUGS (17)
  1. KETONAL DUO [Suspect]
     Indication: RHEUMATOID ARTHRITIS
     Dosage: 150 MG, PRN
     Route: 048
     Dates: start: 200907
  2. TOFACITINIB CITRATE [Suspect]
     Indication: RHEUMATOID ARTHRITIS
     Dosage: 10 MG, BID
     Route: 048
     Dates: start: 20101126
  3. METYPRED [Concomitant]
     Indication: COLITIS
     Dosage: 16 MG, UNK
     Route: 048
     Dates: start: 20100513
  4. METYPRED [Concomitant]
     Dosage: 2 MG, UNK
     Route: 048
     Dates: end: 201009
  5. LOSARTAN POTASSIUM [Concomitant]
     Indication: HYPERTENSION
     Dosage: 50 MG, ONCE/SINGLE
     Route: 048
     Dates: start: 20091221
  6. RAWEL [Concomitant]
     Indication: HYPERTENSION
     Dosage: 1.5 MG, ONCE/SINGLE
     Route: 048
     Dates: start: 20091221
  7. TRAMAL [Concomitant]
     Indication: RHEUMATOID ARTHRITIS
     Dosage: 100 MG, PRN
     Route: 048
     Dates: start: 200907
  8. IPP [Concomitant]
     Indication: PROPHYLAXIS AGAINST GASTROINTESTINAL ULCER
     Dosage: 20 MG, ONCE/SINGLE
     Route: 048
  9. DIOSMINEX [Concomitant]
     Indication: RHEUMATOID ARTHRITIS
     Dosage: UNK UKN, ONCE/SINGLE
     Route: 048
  10. ASPARGIN [Concomitant]
     Dosage: UNK BID
     Route: 048
  11. LORISTA [Concomitant]
     Dosage: 25 MG, ONCE/SINGLE
     Route: 048
  12. KETONAL [Concomitant]
     Indication: ARTHROPATHY
     Dosage: 150 MG, PRN
     Route: 048
  13. POLTRAM [Concomitant]
     Indication: ARTHROPATHY
     Dosage: 100 MG, PRN
     Route: 048
  14. ORTANOL [Concomitant]
     Dosage: 20 MG, ONCE/SINGLE
     Route: 048
  15. ACIDUM FOLICUM [Concomitant]
     Dosage: 15 MG, BIW
     Route: 048
  16. RAWEL SR [Concomitant]
     Dosage: UKN, ONCE/SINGLE
     Route: 048
  17. UROSEPT [Concomitant]
     Dosage: UKN, BID
     Route: 048

REACTIONS (7)
  - Arthropathy [Unknown]
  - Arthralgia [Unknown]
  - Anaemia [Unknown]
  - Hypercholesterolaemia [Unknown]
  - Leukocyturia [Unknown]
  - Red blood cell sedimentation rate increased [Not Recovered/Not Resolved]
  - Weight increased [Unknown]
